FAERS Safety Report 5143315-4 (Version None)
Quarter: 2006Q4

REPORT INFORMATION
  Report Type: 
  Country: None (occurrence: None)
  Receive Date: 20061103
  Receipt Date: 20061024
  Transmission Date: 20070319
  Serious: Yes (Other)
  Sender: FDA-Public Use
  Company Number: US-ROCHE-468445

PATIENT
  Age: 63 Year
  Sex: Male

DRUGS (7)
  1. MYCOPHENOLATE MOFETIL [Suspect]
     Dosage: DOSE WAS LOWERED BEFORE DISCONTINUING
     Route: 065
  2. TACROLIMUS [Suspect]
     Route: 065
  3. TACROLIMUS [Suspect]
     Route: 065
  4. PREDNISONE TAB [Suspect]
     Route: 065
  5. PREDNISONE TAB [Suspect]
     Route: 065
  6. 1 CONCOMITANT DRUG [Concomitant]
     Dosage: REPORTED AS ABLC
  7. FLUCONAZOLE [Concomitant]

REACTIONS (3)
  - CRYPTOCOCCOSIS [None]
  - IMMUNE RECONSTITUTION SYNDROME [None]
  - MUSCLE NECROSIS [None]
